FAERS Safety Report 9176540 (Version 1)
Quarter: 2013Q1

REPORT INFORMATION
  Report Type: Spontaneous
  Country: FR (occurrence: FR)
  Receive Date: 20130321
  Receipt Date: 20130321
  Transmission Date: 20140127
  Serious: Yes (Hospitalization)
  Sender: FDA-Public Use
  Company Number: FR-JNJFOC-20130305727

PATIENT
  Age: 9 Day
  Sex: Male

DRUGS (1)
  1. REMICADE [Suspect]
     Indication: FOETAL EXPOSURE DURING PREGNANCY
     Route: 064

REACTIONS (5)
  - Dermo-hypodermitis [Recovered/Resolved]
  - Agranulocytosis [Recovered/Resolved]
  - Premature baby [Not Recovered/Not Resolved]
  - Pseudomonas infection [Recovering/Resolving]
  - Immunosuppressant drug level increased [Unknown]
